FAERS Safety Report 26157529 (Version 1)
Quarter: 2025Q4

REPORT INFORMATION
  Report Type: Report from Study
  Country: MX (occurrence: MX)
  Receive Date: 20251215
  Receipt Date: 20251215
  Transmission Date: 20260118
  Serious: Yes (Other)
  Sender: NOVARTIS
  Company Number: MX-002147023-NVSC2025MX190363

PATIENT
  Age: 66 Year
  Sex: Female

DRUGS (1)
  1. TASIGNA [Suspect]
     Active Substance: NILOTINIB
     Indication: Chronic myeloid leukaemia
     Dosage: 2 DOSAGE FORM (200MG), Q12H
     Route: 048
     Dates: start: 201805

REACTIONS (2)
  - Myocardial infarction [Unknown]
  - Tachycardia [Unknown]

NARRATIVE: CASE EVENT DATE: 20251101
